FAERS Safety Report 8621771 (Version 14)
Quarter: 2015Q4

REPORT INFORMATION
  Report Type: Report from Study
  Country: CA (occurrence: CA)
  Receive Date: 20120619
  Receipt Date: 20151028
  Transmission Date: 20160305
  Serious: Yes (Other)
  Sender: FDA-Public Use
  Company Number: PHHY2012CA051808

PATIENT
  Age: 34 Year
  Sex: Female

DRUGS (10)
  1. VITAMIN D [Concomitant]
     Active Substance: CHOLECALCIFEROL
     Indication: PRODUCT USED FOR UNKNOWN INDICATION
     Dosage: 50000 IU, QD
     Route: 065
  2. TWINRIX [Concomitant]
     Active Substance: HEPATITIS A VIRUS STRAIN HM175 ANTIGEN (FORMALDEHYDE INACTIVATED)\HEPATITIS B VIRUS SUBTYPE ADW2 HBSAG SURFACE PROTEIN ANTIGEN
     Indication: PRODUCT USED FOR UNKNOWN INDICATION
     Dosage: UNK
     Route: 065
  3. GILENYA [Suspect]
     Active Substance: FINGOLIMOD HYDROCHLORIDE
     Dosage: UNK
     Route: 065
     Dates: start: 201507
  4. CLONAZEPAM. [Concomitant]
     Active Substance: CLONAZEPAM
     Indication: MUSCLE SPASTICITY
     Dosage: 0.5 MG, UNK
     Route: 065
  5. EPIVAL [Concomitant]
     Active Substance: DIVALPROEX SODIUM
     Indication: PRODUCT USED FOR UNKNOWN INDICATION
     Dosage: 750 MG, UNK
     Route: 065
  6. ZOPLICONE [Concomitant]
     Active Substance: ZOPICLONE
     Indication: PRODUCT USED FOR UNKNOWN INDICATION
     Dosage: 7.5 MG, PRN
     Route: 065
  7. DIVALPROEX SODIUM. [Concomitant]
     Active Substance: DIVALPROEX SODIUM
     Indication: BIPOLAR DISORDER
     Route: 065
  8. OSTOFORTE [Concomitant]
     Indication: PRODUCT USED FOR UNKNOWN INDICATION
     Dosage: 50000 IU, ONCE WEEKLY FOR 18 MONTHS
     Route: 065
  9. GILENYA [Suspect]
     Active Substance: FINGOLIMOD HYDROCHLORIDE
     Indication: RELAPSING-REMITTING MULTIPLE SCLEROSIS
     Dosage: 0.5 MG, QD
     Route: 048
     Dates: start: 20120611, end: 20150408
  10. CLONAZEPAM. [Concomitant]
     Active Substance: CLONAZEPAM
     Indication: SLEEP DISORDER
     Dosage: 1 TO 2 MG TID/PRN X 3 WEEKS
     Route: 065

REACTIONS (32)
  - Peroneal nerve palsy [Unknown]
  - Movement disorder [Unknown]
  - Burning sensation [Unknown]
  - Musculoskeletal disorder [Unknown]
  - Paraesthesia [Unknown]
  - Pruritus [Unknown]
  - Blood pressure decreased [Recovered/Resolved]
  - Multiple sclerosis relapse [Recovering/Resolving]
  - Cerebellar syndrome [Unknown]
  - Anxiety [Unknown]
  - Balance disorder [Unknown]
  - Walking disability [Unknown]
  - Discomfort [Unknown]
  - Hypoaesthesia [Not Recovered/Not Resolved]
  - Gait disturbance [Unknown]
  - Clumsiness [Unknown]
  - Visual acuity reduced [Unknown]
  - Fatigue [Recovered/Resolved]
  - Micturition urgency [Unknown]
  - Sensory loss [Unknown]
  - Ataxia [Unknown]
  - Dizziness [Recovered/Resolved]
  - Central nervous system lesion [Unknown]
  - Demyelination [Unknown]
  - Limb discomfort [Not Recovered/Not Resolved]
  - Optic neuritis [Unknown]
  - Muscular weakness [Not Recovered/Not Resolved]
  - Visual impairment [Unknown]
  - Chest discomfort [Unknown]
  - Depression [Unknown]
  - Crying [Unknown]
  - Anger [Unknown]

NARRATIVE: CASE EVENT DATE: 201206
